FAERS Safety Report 7968923-4 (Version None)
Quarter: 2011Q4

REPORT INFORMATION
  Report Type: 
  Country: None (occurrence: None)
  Receive Date: 20111209
  Receipt Date: 20111205
  Transmission Date: 20120403
  Serious: No
  Sender: FDA-Public Use
  Company Number: US-BAYER-2011-117339

PATIENT
  Age: 22 Year
  Sex: Male

DRUGS (2)
  1. ULTRAVIST 150 [Suspect]
     Dosage: UNK
     Route: 048
     Dates: start: 20111202, end: 20111202
  2. ULTRAVIST 150 [Suspect]
     Indication: COMPUTERISED TOMOGRAM ABDOMEN
     Dosage: 100 ML, ONCE
     Route: 042
     Dates: start: 20111202, end: 20111202

REACTIONS (2)
  - URTICARIA [None]
  - PRURITUS [None]
